FAERS Safety Report 23604227 (Version 1)
Quarter: 2024Q1

REPORT INFORMATION
  Report Type: Spontaneous
  Country: TN (occurrence: TN)
  Receive Date: 20240307
  Receipt Date: 20240307
  Transmission Date: 20240409
  Serious: Yes (Hospitalization, Disabling)
  Sender: FDA-Public Use
  Company Number: TN-ABBVIE-5666736

PATIENT
  Age: 87 Year
  Sex: Male

DRUGS (3)
  1. BOTOX [Suspect]
     Active Substance: ONABOTULINUMTOXINA
     Indication: Product used for unknown indication
     Dosage: FORM STRENGTH: 100 INTERNATIONAL UNIT
     Route: 065
     Dates: start: 20240128, end: 20240128
  2. BOTOX [Suspect]
     Active Substance: ONABOTULINUMTOXINA
     Indication: Product used for unknown indication
     Dosage: FORM STRENGTH: 100 INTERNATIONAL UNIT
     Route: 065
     Dates: start: 20240128, end: 20240128
  3. BOTOX [Suspect]
     Active Substance: ONABOTULINUMTOXINA
     Indication: Product used for unknown indication
     Dosage: FORM STRENGTH: 100 INTERNATIONAL UNIT
     Route: 065
     Dates: start: 20240128, end: 20240128

REACTIONS (2)
  - Oedema peripheral [Recovered/Resolved]
  - Pain [Unknown]

NARRATIVE: CASE EVENT DATE: 20240209
